FAERS Safety Report 8771696 (Version 2)
Quarter: 2012Q4

REPORT INFORMATION
  Report Type: 
  Country: US (occurrence: US)
  Receive Date: 20120906
  Receipt Date: 20121114
  Transmission Date: 20130627
  Serious: Yes (Hospitalization)
  Sender: FDA-Public Use
  Company Number: US-VERTEX PHARMACEUTICAL INC.-2012-020583

PATIENT
  Sex: Male

DRUGS (3)
  1. VX-950 (TELAPREVIR) [Suspect]
     Indication: HEPATITIS C
     Dosage: 750 mg, tid
     Route: 048
     Dates: start: 20120620
  2. PEGASYS [Suspect]
     Indication: HEPATITIS C
     Dosage: 180 ?g, qw
     Route: 058
     Dates: start: 20120620
  3. RIBASPHERE [Suspect]
     Indication: HEPATITIS C
     Dosage: 200 mg, bid
     Route: 048
     Dates: start: 20120620

REACTIONS (3)
  - Encephalopathy [Unknown]
  - Insomnia [Unknown]
  - Abdominal pain upper [Unknown]
